FAERS Safety Report 19478231 (Version 2)
Quarter: 2021Q3

REPORT INFORMATION
  Report Type: Spontaneous
  Country: CN (occurrence: CN)
  Receive Date: 20210630
  Receipt Date: 20210716
  Transmission Date: 20211014
  Serious: Yes (Other)
  Sender: FDA-Public Use
  Company Number: CN-PFIZER INC-2021716926

PATIENT
  Age: 50 Year
  Sex: Female
  Weight: 42.5 kg

DRUGS (2)
  1. SODIUM CHLORIDE. [Concomitant]
     Active Substance: SODIUM CHLORIDE
     Indication: VEHICLE SOLUTION USE
     Dosage: 500 ML, 1X/DAY
     Route: 041
     Dates: start: 20210527, end: 20210527
  2. EPIRUBICIN HCL [Suspect]
     Active Substance: EPIRUBICIN HYDROCHLORIDE
     Indication: BREAST CANCER
     Dosage: 110 MG, 1X/DAY
     Route: 041
     Dates: start: 20210527, end: 20210527

REACTIONS (10)
  - Pyrexia [Recovering/Resolving]
  - Nausea [Recovering/Resolving]
  - Neutrophil count decreased [Recovering/Resolving]
  - Chills [Recovering/Resolving]
  - Feeling cold [Recovering/Resolving]
  - Quadriparesis [Recovering/Resolving]
  - White blood cell count decreased [Recovering/Resolving]
  - Pain in extremity [Recovering/Resolving]
  - Vomiting [Recovering/Resolving]
  - Decreased appetite [Recovering/Resolving]

NARRATIVE: CASE EVENT DATE: 20210527
